FAERS Safety Report 25703322 (Version 5)
Quarter: 2025Q4

REPORT INFORMATION
  Report Type: Report from Study
  Country: CA (occurrence: CA)
  Receive Date: 20250820
  Receipt Date: 20251208
  Transmission Date: 20260117
  Serious: Yes (Hospitalization, Other)
  Sender: JOHNSON AND JOHNSON
  Company Number: CA-JNJFOC-20250520056

PATIENT
  Age: 86 Year
  Sex: Female
  Weight: 87.5 kg

DRUGS (3)
  1. SIMPONI [Suspect]
     Active Substance: GOLIMUMAB
     Indication: Rheumatoid arthritis
     Route: 058
     Dates: start: 20080222
  2. SIMPONI [Suspect]
     Active Substance: GOLIMUMAB
     Dosage: THERAPY START DATE ALSO REPORTED AS 22-FEB-2024, 10-OCT-2023
     Route: 058
     Dates: start: 20240202
  3. SIMPONI [Suspect]
     Active Substance: GOLIMUMAB
     Dosage: THERAPY START DATE ALSO REPORTED AS 22-FEB-2024. 1 NUMBER OF UNITS INVOLVED IN THIS COMPLAINT.
     Route: 058

REACTIONS (4)
  - Urosepsis [Unknown]
  - Bacteraemia [Unknown]
  - Posterior capsule opacification [Recovered/Resolved]
  - Off label use [Unknown]

NARRATIVE: CASE EVENT DATE: 20240202
